FAERS Safety Report 6026273-X (Version None)
Quarter: 2008Q4

REPORT INFORMATION
  Report Type: 
  Country: None (occurrence: None)
  Receive Date: 20081230
  Receipt Date: 20081222
  Transmission Date: 20090506
  Serious: Yes (Hospitalization)
  Sender: FDA-Public Use
  Company Number: DSA_32950_2008

PATIENT
  Sex: Female

DRUGS (2)
  1. LORAZEPAM [Suspect]
     Dosage: (OVERDOSE AMOUNT UNKNOWN ORAL)
     Route: 048
     Dates: start: 20081219, end: 20081219
  2. ALCOHOL (ALCOHOL) [Suspect]
     Dosage: (OVERDOSE AMOUNT UNKNOWN ORAL)
     Route: 048
     Dates: start: 20081210, end: 20081219

REACTIONS (3)
  - MULTIPLE DRUG OVERDOSE INTENTIONAL [None]
  - SUICIDE ATTEMPT [None]
  - TACHYCARDIA [None]
